FAERS Safety Report 25323608 (Version 3)
Quarter: 2025Q2

REPORT INFORMATION
  Report Type: Spontaneous
  Country: IQ (occurrence: IQ)
  Receive Date: 20250516
  Receipt Date: 20250609
  Transmission Date: 20250717
  Serious: Yes (Death, Hospitalization, Other)
  Sender: BAYER HEALTHCARE PHARMACEUTICALS INC.
  Company Number: IQ-BAYER-2025A062016

PATIENT
  Sex: Male

DRUGS (1)
  1. REGORAFENIB [Suspect]
     Active Substance: REGORAFENIB
     Indication: Gastrointestinal stromal tumour
     Dosage: LAST DOSE- 3 WEEKS ON 1 WEEK OFF

REACTIONS (10)
  - Death [Fatal]
  - Anaemia [None]
  - Diarrhoea [None]
  - Dehydration [None]
  - Renal impairment [None]
  - Gastrointestinal stromal tumour [Not Recovered/Not Resolved]
  - Ureteric cancer metastatic [None]
  - Metastases to bladder [None]
  - Bladder obstruction [None]
  - Ureteric obstruction [None]
